FAERS Safety Report 10675396 (Version 2)
Quarter: 2015Q1

REPORT INFORMATION
  Report Type: Spontaneous
  Country: US (occurrence: US)
  Receive Date: 20141224
  Receipt Date: 20150119
  Transmission Date: 20150720
  Serious: Yes (Other)
  Sender: FDA-Public Use
  Company Number: US-009507513-1412USA008469

PATIENT
  Age: 67 Year
  Sex: Male

DRUGS (1)
  1. ASMANEX [Suspect]
     Active Substance: MOMETASONE FUROATE
     Dosage: 220 MICROGRAM TWICE DAILY/ STRENGTH: 220 Y
     Dates: start: 201409

REACTIONS (4)
  - Product quality issue [Unknown]
  - Coronary artery bypass [Recovered/Resolved]
  - Asthma [Recovered/Resolved]
  - Drug dose omission [Unknown]

NARRATIVE: CASE EVENT DATE: 2014
